FAERS Safety Report 5098672-4 (Version None)
Quarter: 2006Q3

REPORT INFORMATION
  Report Type: 
  Country: None (occurrence: None)
  Receive Date: 20060905
  Receipt Date: 20060821
  Transmission Date: 20061208
  Serious: Yes (Death)
  Sender: FDA-Public Use
  Company Number: 2006S1007006

PATIENT
  Age: 45 Year
  Sex: Female

DRUGS (12)
  1. CLOZAPINE [Suspect]
     Dosage: 50 MG; HS; PO
     Route: 048
     Dates: start: 20030801, end: 20060701
  2. CLOZAPINE [Suspect]
     Dosage: 400 MG; HS; PO
     Route: 048
     Dates: start: 20030801, end: 20060701
  3. RISPERIDONE [Concomitant]
  4. LITHIUM [Concomitant]
  5. LEVOTHYROXINE SODIUM [Concomitant]
  6. RANITIDINE [Concomitant]
  7. ASPIRIN [Concomitant]
  8. CALCIUM + VITAMIN D [Concomitant]
  9. FIBER [Concomitant]
  10. DOCUSATE SODIUM [Concomitant]
  11. GLYCOLAX [Concomitant]
  12. LACTULOSE [Concomitant]

REACTIONS (1)
  - SMALL CELL CARCINOMA [None]
